FAERS Safety Report 24770959 (Version 1)
Quarter: 2024Q4

REPORT INFORMATION
  Report Type: Report from Study
  Country: BE (occurrence: BE)
  Receive Date: 20241224
  Receipt Date: 20241224
  Transmission Date: 20250115
  Serious: Yes (Hospitalization)
  Sender: ABBVIE
  Company Number: BE-ABBVIE-5624102

PATIENT
  Age: 61 Year
  Sex: Female

DRUGS (8)
  1. CARBIDOPA\LEVODOPA [Suspect]
     Active Substance: CARBIDOPA\LEVODOPA
     Indication: Parkinson^s disease
     Dosage: MD: 3.5 ML, CD: 1.8 ML/H, ED: 1.40 ML DURING 16 HOURS
     Route: 050
     Dates: start: 20241217, end: 20241218
  2. CARBIDOPA\LEVODOPA [Suspect]
     Active Substance: CARBIDOPA\LEVODOPA
     Route: 050
     Dates: start: 20170606
  3. CARBIDOPA\LEVODOPA [Suspect]
     Active Substance: CARBIDOPA\LEVODOPA
     Dosage: MD: 3.5 ML, CD: 1.7 ML/H, ED: 1.3 ML DURING 16 HOURS
     Route: 050
     Dates: start: 20240130, end: 20240201
  4. CARBIDOPA\LEVODOPA [Suspect]
     Active Substance: CARBIDOPA\LEVODOPA
     Dosage: MD: 3.5 ML, CD: 1.7 ML/H, ED: 1.30 ML DURING 16 HOURS
     Route: 050
     Dates: start: 20240731, end: 20240801
  5. REQUIP [Concomitant]
     Active Substance: ROPINIROLE HYDROCHLORIDE
     Indication: Product used for unknown indication
     Dosage: FORM STRENGTH: 4 MG, ?FREQUENCY TEXT: 08.00
  6. BENSERAZIDE\LEVODOPA [Concomitant]
     Active Substance: BENSERAZIDE\LEVODOPA
     Indication: Product used for unknown indication
     Dosage: FORM STRENGTH: 250 MG
  7. ELDEPRYL [Concomitant]
     Active Substance: SELEGILINE HYDROCHLORIDE
     Indication: Product used for unknown indication
     Dosage: 1 TABLET, FORM STRENGTH: 5 MG
  8. ARTANE [Concomitant]
     Active Substance: TRIHEXYPHENIDYL HYDROCHLORIDE
     Indication: Product used for unknown indication
     Dosage: TIME INTERVAL: 0.33333333 DAYS: FORM STRENGTH: 2 MG

REACTIONS (10)
  - Nervous system disorder [Unknown]
  - Therapeutic product effect incomplete [Unknown]
  - Device occlusion [Recovered/Resolved]
  - Device connection issue [Recovered/Resolved]
  - Device placement issue [Recovered/Resolved]
  - Tremor [Unknown]
  - Muscle contracture [Unknown]
  - Muscle rigidity [Unknown]
  - Anxiety [Unknown]
  - Freezing phenomenon [Unknown]

NARRATIVE: CASE EVENT DATE: 20240101
